FAERS Safety Report 15745421 (Version 1)
Quarter: 2018Q4

REPORT INFORMATION
  Report Type: Spontaneous
  Country: CA (occurrence: CA)
  Receive Date: 20181220
  Receipt Date: 20181220
  Transmission Date: 20190205
  Serious: Yes (Hospitalization)
  Sender: FDA-Public Use
  Company Number: CA-OTSUKA-2018_039239

PATIENT
  Age: 36 Year
  Sex: Female

DRUGS (3)
  1. ZYPREXA [Concomitant]
     Active Substance: OLANZAPINE
     Indication: PRODUCT USED FOR UNKNOWN INDICATION
     Dosage: 15MG; DECREASED AT 5 MG INCREMENTS
  2. REXULTI [Suspect]
     Active Substance: BREXPIPRAZOLE
     Indication: SCHIZOPHRENIA
     Dosage: 2 MG AND THEN 3MG; NOW ON MONOTHERAPY WITH REXULTI (4 MG)
     Route: 065
  3. ABILIFY [Suspect]
     Active Substance: ARIPIPRAZOLE
     Indication: SCHIZOPHRENIA
     Dosage: 5 MG, UNK
     Route: 065

REACTIONS (4)
  - Agitation [Unknown]
  - Energy increased [Unknown]
  - Hospitalisation [Unknown]
  - Anxiety [Unknown]
